FAERS Safety Report 8882618 (Version 1)
Quarter: 2012Q4

REPORT INFORMATION
  Report Type: 
  Country: US (occurrence: US)
  Receive Date: 20121105
  Receipt Date: 20121105
  Transmission Date: 20130627
  Serious: No
  Sender: FDA-Public Use
  Company Number: US-B.I. PHARMACEUTICALS,INC./RIDGEFIELD-2012-BP-27108BP

PATIENT
  Sex: Female
  Weight: 82.55 kg

DRUGS (5)
  1. PRADAXA [Suspect]
     Indication: ATRIAL FIBRILLATION
     Dosage: 300 mg
     Route: 048
     Dates: start: 201111
  2. METOPROLOL XL [Concomitant]
     Indication: HYPERTENSION
     Dosage: 200 mg
     Route: 048
     Dates: start: 2010
  3. SIMVASTATIN [Concomitant]
     Indication: BLOOD CHOLESTEROL INCREASED
     Dosage: 10 mg
     Route: 048
     Dates: start: 2007
  4. LOSARTAN HCTZ [Concomitant]
     Indication: HYPERTENSION
     Route: 048
     Dates: start: 2010
  5. CARDURA [Concomitant]
     Indication: HYPERTENSION
     Dosage: 2 mg
     Route: 048
     Dates: start: 2010

REACTIONS (2)
  - Arthralgia [Not Recovered/Not Resolved]
  - Abnormal loss of weight [Not Recovered/Not Resolved]
